FAERS Safety Report 6449226-6 (Version None)
Quarter: 2009Q4

REPORT INFORMATION
  Report Type: 
  Country: None (occurrence: None)
  Receive Date: 20091120
  Receipt Date: 20090929
  Transmission Date: 20100525
  Serious: Yes (Other)
  Sender: FDA-Public Use
  Company Number: DK-PFIZER INC-2009272631

PATIENT
  Age: 64 Year
  Sex: Female

DRUGS (2)
  1. PREGABALIN [Suspect]
     Indication: ANXIETY
     Dosage: UNK
     Dates: start: 20090601, end: 20090906
  2. FONTEX [Concomitant]
     Indication: DEPRESSION
     Dosage: UNK
     Dates: end: 20090101

REACTIONS (1)
  - PARAESTHESIA [None]
